FAERS Safety Report 6704092-6 (Version None)
Quarter: 2010Q2

REPORT INFORMATION
  Report Type: 
  Country: None (occurrence: None)
  Receive Date: 20100430
  Receipt Date: 20100419
  Transmission Date: 20101027
  Serious: Yes (Hospitalization)
  Sender: FDA-Public Use
  Company Number: US-WATSON-2010-05668

PATIENT
  Age: 62 Year
  Sex: Female

DRUGS (3)
  1. LISINOPRIL [Suspect]
     Indication: HYPERTENSION
     Dosage: 10 MG, UNK
  2. HYDROCHLOROTHIAZIDE (WATSON LABORATORIES) [Suspect]
     Indication: HYPERTENSION
     Dosage: 25 MG, DAILY
  3. LITHIUM [Suspect]
     Indication: BIPOLAR II DISORDER
     Dosage: 300 MG, BID

REACTIONS (4)
  - DRUG INTERACTION [None]
  - NEUROLOGICAL SYMPTOM [None]
  - RENAL FAILURE [None]
  - THERAPEUTIC AGENT TOXICITY [None]
